FAERS Safety Report 7730365-4 (Version None)
Quarter: 2011Q3

REPORT INFORMATION
  Report Type: 
  Country: None (occurrence: None)
  Receive Date: 20110906
  Receipt Date: 20110629
  Transmission Date: 20111222
  Serious: No
  Sender: FDA-Public Use
  Company Number: US-GLAXOSMITHKLINE-A0933883A

PATIENT
  Age: 41 Year
  Sex: Male

DRUGS (6)
  1. LYRICA [Concomitant]
  2. LAMICTAL [Suspect]
     Indication: CONVULSION
     Dosage: 250MG TWICE PER DAY
     Route: 048
     Dates: start: 20100501
  3. KLONOPIN [Concomitant]
  4. POTASSIUM [Concomitant]
  5. SIMVASTATIN [Concomitant]
  6. AMILORIDE HYDROCHLORIDE [Concomitant]

REACTIONS (1)
  - DRUG SCREEN FALSE POSITIVE [None]
